FAERS Safety Report 9160096 (Version 3)
Quarter: 2013Q2

REPORT INFORMATION
  Report Type: Spontaneous
  Country: JP (occurrence: JP)
  Receive Date: 20130313
  Receipt Date: 20130501
  Transmission Date: 20140414
  Serious: Yes (Death, Life-Threatening, Hospitalization)
  Sender: FDA-Public Use
  Company Number: JP-B.I. PHARMACEUTICALS,INC./RIDGEFIELD-2013-BI-06505NB

PATIENT
  Age: 71 Year
  Sex: Male
  Weight: 57 kg

DRUGS (8)
  1. SPIRIVA [Suspect]
     Indication: CHRONIC OBSTRUCTIVE PULMONARY DISEASE
     Dosage: 18 MCG
     Route: 055
     Dates: start: 20080421, end: 20130304
  2. BAYASPIRIN [Concomitant]
     Dosage: 100 MG
     Route: 048
     Dates: start: 2008
  3. EXFORGE [Concomitant]
     Route: 048
     Dates: start: 20120605
  4. UNIPHYL LA [Concomitant]
     Dosage: 200 MG
     Route: 048
     Dates: start: 20121029
  5. SALITIN [Concomitant]
     Dosage: 750 MG
     Route: 048
     Dates: start: 20121029
  6. BENZMARONE [Concomitant]
     Dosage: 150 MG
     Route: 048
     Dates: start: 2008
  7. SYMBICORT [Concomitant]
     Dosage: 2 PUF
     Route: 055
     Dates: start: 20110316
  8. MEPTIN AIR [Concomitant]
     Route: 055
     Dates: start: 2008

REACTIONS (8)
  - Sepsis [Fatal]
  - Ileus [Fatal]
  - Appendicitis [Fatal]
  - Peritonitis [Fatal]
  - Shock [Fatal]
  - Septic shock [Fatal]
  - Multi-organ failure [Fatal]
  - Disseminated intravascular coagulation [Fatal]
